FAERS Safety Report 7700123-5 (Version None)
Quarter: 2011Q3

REPORT INFORMATION
  Report Type: 
  Country: None (occurrence: None)
  Receive Date: 20110822
  Receipt Date: 20110810
  Transmission Date: 20111222
  Serious: Yes (Hospitalization, Other)
  Sender: FDA-Public Use
  Company Number: US-UCBSA-038885

PATIENT
  Sex: Female
  Weight: 46.27 kg

DRUGS (3)
  1. VIMPAT [Suspect]
     Indication: CONVULSION
     Route: 048
     Dates: start: 20110808
  2. KEPPRA [Suspect]
     Indication: CONVULSION
     Route: 048
  3. KEPPRA XR [Suspect]
     Indication: CONVULSION
     Route: 048
     Dates: start: 20100101, end: 20110101

REACTIONS (4)
  - INAPPROPRIATE SCHEDULE OF DRUG ADMINISTRATION [None]
  - PANIC ATTACK [None]
  - CONVULSION [None]
  - DRUG INEFFECTIVE [None]
